FAERS Safety Report 10061319 (Version 1)
Quarter: 2014Q2

REPORT INFORMATION
  Report Type: Spontaneous
  Country: US (occurrence: US)
  Receive Date: 20140407
  Receipt Date: 20140407
  Transmission Date: 20141212
  Serious: No
  Sender: FDA-Public Use
  Company Number: US-009507513-1404USA002332

PATIENT
  Sex: Female

DRUGS (2)
  1. ZIOPTAN [Suspect]
     Indication: INTRAOCULAR PRESSURE INCREASED
     Dosage: UNK
     Route: 047
     Dates: start: 201402
  2. ZIOPTAN [Suspect]
     Dosage: 5 TIMES PER DAY IN ONE DAY
     Route: 047
     Dates: start: 2014

REACTIONS (6)
  - Vision blurred [Unknown]
  - Ocular hyperaemia [Unknown]
  - Eye irritation [Unknown]
  - Wrong drug administered [Unknown]
  - Overdose [Unknown]
  - Expired product administered [Unknown]
